FAERS Safety Report 21927154 (Version 8)
Quarter: 2023Q2

REPORT INFORMATION
  Report Type: Spontaneous
  Country: CA (occurrence: CA)
  Receive Date: 20230130
  Receipt Date: 20230525
  Transmission Date: 20230722
  Serious: Yes (Death, Hospitalization, Other)
  Sender: FDA-Public Use
  Company Number: CA-PFIZER INC-PV202300007264

PATIENT
  Age: 59 Year
  Sex: Female
  Weight: 59.864 kg

DRUGS (3)
  1. ZIRABEV [Suspect]
     Active Substance: BEVACIZUMAB-BVZR
     Indication: Sarcoma uterus
     Dosage: 15 MG/KG, CYCLIC [INITIAL DOSE 15 MG/KG Q3WKS, MAINTENANCE DOSE 15 MG/KG Q3WKS, FOR 6 CYCLES]
     Route: 042
  2. DOXORUBICIN HYDROCHLORIDE [Concomitant]
     Active Substance: DOXORUBICIN HYDROCHLORIDE
     Dosage: UNK
  3. PAZOPANIB HYDROCHLORIDE [Concomitant]
     Active Substance: PAZOPANIB HYDROCHLORIDE
     Dosage: UNK

REACTIONS (7)
  - Coma [Fatal]
  - Metastatic neoplasm [Not Recovered/Not Resolved]
  - Transfusion [Unknown]
  - Neoplasm progression [Unknown]
  - Muscle disorder [Not Recovered/Not Resolved]
  - Off label use [Unknown]
  - Pain [Unknown]

NARRATIVE: CASE EVENT DATE: 20230306
